FAERS Safety Report 4299223-4 (Version None)
Quarter: 2004Q1

REPORT INFORMATION
  Report Type: 
  Country: None (occurrence: None)
  Receive Date: 20040217
  Receipt Date: 20040203
  Transmission Date: 20041129
  Serious: Yes (Hospitalization, Disabling, Other)
  Sender: FDA-Public Use
  Company Number: 2003124521

PATIENT
  Age: 47 Year
  Sex: Female

DRUGS (6)
  1. NEURONTIN [Suspect]
     Indication: PANIC ATTACK
     Dosage: 900 MG (TID), ORAL
     Route: 048
     Dates: start: 20031108
  2. FLUOXETINE HCL [Concomitant]
  3. FENTANYL [Concomitant]
  4. CLONAZEPAM [Concomitant]
  5. HYDROMORPHONE HCL [Concomitant]
  6. MORPHINE SULFATE [Concomitant]

REACTIONS (16)
  - AGGRESSION [None]
  - CONDITION AGGRAVATED [None]
  - DEAFNESS [None]
  - DYSGRAPHIA [None]
  - DYSPHAGIA [None]
  - FATIGUE [None]
  - FEAR [None]
  - HEARING IMPAIRED [None]
  - INJURY [None]
  - NEURALGIA [None]
  - PAIN [None]
  - PANIC DISORDER [None]
  - SLUGGISHNESS [None]
  - SUICIDE ATTEMPT [None]
  - VISION BLURRED [None]
  - WEIGHT INCREASED [None]
